FAERS Safety Report 22294510 (Version 1)
Quarter: 2023Q2

REPORT INFORMATION
  Report Type: Spontaneous
  Country: US (occurrence: US)
  Receive Date: 20230508
  Receipt Date: 20230508
  Transmission Date: 20230721
  Serious: Yes (Other)
  Sender: FDA-Public Use
  Company Number: US-ASTPRD-AER-2022-028839

PATIENT
  Age: 82 Year
  Sex: Female

DRUGS (14)
  1. LEXISCAN [Suspect]
     Active Substance: REGADENOSON
     Indication: Cardiac stress test
     Dosage: 0.4 MG, TOTAL DOSE (1 DOSE ONCE)(OVER 15-20 SEC AS PER PROTOCOL)
     Route: 040
     Dates: start: 20221212, end: 20221212
  2. LEXISCAN [Suspect]
     Active Substance: REGADENOSON
     Indication: Cardiac stress test
     Dosage: 0.4 MG, TOTAL DOSE (1 DOSE ONCE)(OVER 15-20 SEC AS PER PROTOCOL)
     Route: 040
     Dates: start: 20221212, end: 20221212
  3. LEXISCAN [Suspect]
     Active Substance: REGADENOSON
     Indication: Cardiac stress test
     Dosage: 0.4 MG, TOTAL DOSE (1 DOSE ONCE)(OVER 15-20 SEC AS PER PROTOCOL)
     Route: 040
     Dates: start: 20221212, end: 20221212
  4. LEXISCAN [Suspect]
     Active Substance: REGADENOSON
     Indication: Cardiac stress test
     Dosage: 0.4 MG, TOTAL DOSE (1 DOSE ONCE)(OVER 15-20 SEC AS PER PROTOCOL)
     Route: 040
     Dates: start: 20221212, end: 20221212
  5. LEXISCAN [Suspect]
     Active Substance: REGADENOSON
     Indication: Magnetic resonance imaging
  6. LEXISCAN [Suspect]
     Active Substance: REGADENOSON
     Indication: Magnetic resonance imaging
  7. LEXISCAN [Suspect]
     Active Substance: REGADENOSON
     Indication: Magnetic resonance imaging
  8. LEXISCAN [Suspect]
     Active Substance: REGADENOSON
     Indication: Magnetic resonance imaging
  9. ASPIRIN [Concomitant]
     Active Substance: ASPIRIN
     Indication: Product used for unknown indication
     Dosage: 81 MG, ONCE DAILY (QD)
     Route: 065
  10. ATORVASTATIN [Concomitant]
     Active Substance: ATORVASTATIN
     Indication: Product used for unknown indication
     Dosage: 10 MG, ONCE DAILY (QD)
     Route: 065
  11. FAMOTIDINE [Concomitant]
     Active Substance: FAMOTIDINE
     Indication: Product used for unknown indication
     Dosage: 40 MG, ONCE DAILY (QD)
     Route: 065
  12. JANUVIA [Concomitant]
     Active Substance: SITAGLIPTIN PHOSPHATE
     Indication: Product used for unknown indication
     Dosage: 100 MG, ONCE DAILY (QD)
     Route: 065
  13. MONTELUKAST [Concomitant]
     Active Substance: MONTELUKAST SODIUM
     Indication: Product used for unknown indication
     Dosage: 10 MG, ONCE DAILY (QD)
     Route: 065
  14. PANTOPRAZOLE [Concomitant]
     Active Substance: PANTOPRAZOLE
     Indication: Product used for unknown indication
     Dosage: 40 MG, ONCE DAILY (QD)
     Route: 065

REACTIONS (4)
  - Loss of consciousness [Recovered/Resolved]
  - Nausea [Recovered/Resolved]
  - Dizziness [Recovered/Resolved]
  - Incorrect product administration duration [Unknown]

NARRATIVE: CASE EVENT DATE: 20221212
